FAERS Safety Report 12888520 (Version 1)
Quarter: 2016Q4

REPORT INFORMATION
  Report Type: Spontaneous
  Country: US (occurrence: US)
  Receive Date: 20161027
  Receipt Date: 20161027
  Transmission Date: 20170207
  Serious: Yes (Other)
  Sender: FDA-Public Use
  Company Number: US-PFIZER INC-2016499936

PATIENT
  Age: 37 Year
  Sex: Female

DRUGS (1)
  1. IBUPROFEN. [Suspect]
     Active Substance: IBUPROFEN

REACTIONS (5)
  - Ulcer [Unknown]
  - Anaphylactic reaction [Unknown]
  - Vomiting [Unknown]
  - Drug hypersensitivity [Unknown]
  - Nausea [Unknown]
